FAERS Safety Report 8791404 (Version 1)
Quarter: 2012Q4

REPORT INFORMATION
  Report Type: Spontaneous
  Country: US (occurrence: None)
  Receive Date: 20120911
  Receipt Date: 20120911
  Transmission Date: 20130627
  Serious: Yes (Other)
  Sender: FDA-Public Use
  Company Number: ADR-2012-01664

PATIENT
  Sex: Male

DRUGS (5)
  1. LIORESAL INTRATHECAL (BACLOFEN INJECTION) [Suspect]
     Indication: SPASTICITY
  2. LIORESAL INTRATHECAL (BACLOFEN INJECTION) [Suspect]
     Indication: HEAD INJURY
  3. LIORESAL INTRATHECAL (BACLOFEN INJECTION) [Suspect]
     Indication: BRAIN INJURY
  4. PHENOBARBITAL [Concomitant]
  5. VALIUM [Concomitant]

REACTIONS (5)
  - Device occlusion [None]
  - Drug withdrawal syndrome [None]
  - Hypertonia [None]
  - Muscle spasticity [None]
  - Incision site infection [None]
